FAERS Safety Report 12234709 (Version 2)
Quarter: 2016Q2

REPORT INFORMATION
  Report Type: Spontaneous
  Country: TR (occurrence: TR)
  Receive Date: 20160404
  Receipt Date: 20160404
  Transmission Date: 20160815
  Serious: Yes (Death)
  Sender: FDA-Public Use
  Company Number: TR-WATSON-2016-07162

PATIENT
  Age: 73 Year
  Sex: Male

DRUGS (9)
  1. FOLINIC ACID [Suspect]
     Active Substance: LEUCOVORIN
     Indication: LYMPHOMA
     Dosage: FOR 28 DAYS IN 6 CYCLES
     Route: 065
  2. OXALIPLATIN (UNKNOWN) [Suspect]
     Active Substance: OXALIPLATIN
     Indication: LYMPHOMA
     Dosage: ON DAYS 1 AND 15 FOR 28 DAYS IN 6 CYCLES
     Route: 065
  3. VINCRISTINE (UNKNOWN) [Suspect]
     Active Substance: VINCRISTINE
     Indication: LYMPHOMA
     Dosage: ON DAY 1 ONCE EVERY 3 WEEKS
     Route: 065
  4. CYCLOPHOSPHAMIDE. [Suspect]
     Active Substance: CYCLOPHOSPHAMIDE
     Indication: LYMPHOMA
     Dosage: ON DAY 1 ONCE EVERY 3 WEEKS
     Route: 065
  5. METRONIDAZOLE. [Concomitant]
     Active Substance: METRONIDAZOLE
     Indication: ABSCESS
     Dosage: 500 MG, TID
     Route: 065
  6. FLUOROURACIL. [Suspect]
     Active Substance: FLUOROURACIL
     Indication: LYMPHOMA
     Dosage: ON DAYS 1 AND 15 FOR 28 DAYS IN 6 CYCLES
     Route: 065
  7. MEROPENEM. [Concomitant]
     Active Substance: MEROPENEM
     Indication: ABSCESS
     Dosage: 1 G, TID
     Route: 065
  8. PREDNISOLONE (UNKNOWN) [Suspect]
     Active Substance: PREDNISOLONE
     Indication: LYMPHOMA
     Dosage: ON DAYS 1- 5 ONCE EVERY 3 WEEKS
     Route: 065
  9. RITUXIMAB [Suspect]
     Active Substance: RITUXIMAB
     Indication: LYMPHOMA
     Dosage: ON DAY 1 ONCE EVERY 3 WEEKS
     Route: 065

REACTIONS (1)
  - Malignant neoplasm progression [Fatal]
